FAERS Safety Report 6300255-2 (Version None)
Quarter: 2009Q3

REPORT INFORMATION
  Report Type: 
  Country: None (occurrence: None)
  Receive Date: 20090806
  Receipt Date: 20090730
  Transmission Date: 20100115
  Serious: Yes (Hospitalization)
  Sender: FDA-Public Use
  Company Number: JP-ABBOTT-09P-087-0570081-00

PATIENT
  Sex: Female
  Weight: 7.1 kg

DRUGS (8)
  1. SEVOFLURANE [Suspect]
     Indication: INDUCTION AND MAINTENANCE OF ANAESTHESIA
     Route: 055
     Dates: start: 20070910, end: 20070910
  2. PENTAZOCINE LACTATE [Suspect]
     Indication: ANALGESIA
     Route: 042
     Dates: start: 20070910, end: 20070910
  3. MIDAZOLAM HCL [Concomitant]
     Indication: PREMEDICATION
     Route: 065
  4. NITROUS OXIDE [Concomitant]
     Indication: INDUCTION AND MAINTENANCE OF ANAESTHESIA
     Dosage: UNKNOWN
     Route: 055
     Dates: start: 20070910, end: 20070910
  5. OXYGEN [Concomitant]
     Indication: INDUCTION AND MAINTENANCE OF ANAESTHESIA
     Dosage: UNKNOWN/33%/21%
     Route: 055
  6. OXYGEN [Concomitant]
     Route: 055
  7. OXYGEN [Concomitant]
     Route: 055
  8. VECURONIUM BROMIDE [Concomitant]
     Indication: HYPOTONIA
     Route: 042
     Dates: start: 20070910, end: 20070910

REACTIONS (3)
  - CARDIAC FAILURE ACUTE [None]
  - PYREXIA [None]
  - RESPIRATORY FAILURE [None]
